FAERS Safety Report 22674195 (Version 4)
Quarter: 2023Q4

REPORT INFORMATION
  Report Type: Spontaneous
  Country: US (occurrence: US)
  Receive Date: 20230705
  Receipt Date: 20231116
  Transmission Date: 20240110
  Serious: No
  Sender: FDA-Public Use
  Company Number: US-BRISTOL-MYERS SQUIBB COMPANY-2023-094617

PATIENT
  Age: 83 Year
  Sex: Female

DRUGS (1)
  1. REVLIMID [Suspect]
     Active Substance: LENALIDOMIDE
     Indication: Myelodysplastic syndrome
     Route: 048
     Dates: start: 202306

REACTIONS (7)
  - Nausea [Unknown]
  - White blood cell count decreased [Unknown]
  - Pain in extremity [Unknown]
  - Sleep disorder [Unknown]
  - Arthritis [Unknown]
  - Dysphagia [Unknown]
  - Dysphonia [Unknown]

NARRATIVE: CASE EVENT DATE: 20230705
